FAERS Safety Report 9908192 (Version 1)
Quarter: 2013Q2

REPORT INFORMATION
  Report Type: Spontaneous
  Country: US (occurrence: None)
  Receive Date: 20130305
  Receipt Date: 20130305
  Transmission Date: 20140414
  Serious: Yes (Other)
  Sender: FDA-Public Use
  Company Number: 163-21880-12122277

PATIENT
  Age: 72 Year
  Sex: Female

DRUGS (9)
  1. REVLIMID (LENALIDOMIDE) (CAPSULES) [Suspect]
     Indication: PLASMA CELL MYELOMA
     Dosage: 25 MG, 21 IN 21 D, PO
     Route: 048
     Dates: start: 20080918
  2. ATIVAN (LORAZEPAM) (UNKNOWN) [Concomitant]
  3. COUMADIN (WARFARIN SODIUM) (UNKNOWN) [Concomitant]
  4. DEXAMETHASONE (DEXAMEHTASONE) (UNKNOWN) [Concomitant]
  5. DIPHENOXYLATE-ATROPINE (LOMOTIL) (UNKNOWN) [Concomitant]
  6. FUROSEMIDE (FUROSEMIDE) (UNKNOWN) [Concomitant]
  7. LISINOPRIL (LISINOPRIL) (UNKNOWN) [Concomitant]
  8. POTASSIUM (POTASSIUM) (UNKNOWN) [Concomitant]
  9. ZOMETA (ZOLEDRONIC ACID) (UNKNOWN) [Concomitant]

REACTIONS (4)
  - International normalised ratio increased [None]
  - Decreased appetite [None]
  - Nausea [None]
  - Asthenia [None]
